FAERS Safety Report 21045318 (Version 1)
Quarter: 2022Q3

REPORT INFORMATION
  Report Type: Spontaneous
  Country: JP (occurrence: JP)
  Receive Date: 20220706
  Receipt Date: 20220706
  Transmission Date: 20221027
  Serious: Yes (Other)
  Sender: FDA-Public Use
  Company Number: JP-ASTELLAS-2021US007850

PATIENT
  Age: 80 Year
  Sex: Male

DRUGS (4)
  1. BENDAMUSTINE HYDROCHLORIDE [Suspect]
     Active Substance: BENDAMUSTINE HYDROCHLORIDE
     Indication: Mantle cell lymphoma
     Dosage: (1 CYCLE OF MONOTHERAPY)
     Route: 042
  2. BENDAMUSTINE HYDROCHLORIDE [Suspect]
     Active Substance: BENDAMUSTINE HYDROCHLORIDE
     Dosage: (3 CYCLES OF BR THERAPY)
     Route: 042
  3. RITUXIMAB [Suspect]
     Active Substance: RITUXIMAB
     Indication: Mantle cell lymphoma
     Dosage: (CYCLIC)
     Route: 041
  4. CYCLOPHOSPHAMIDE;PREDNISONE;VINCRISTINE [Concomitant]
     Indication: Product used for unknown indication
     Dosage: (2 CYCLES)
     Route: 065

REACTIONS (6)
  - Mantle cell lymphoma [Unknown]
  - Condition aggravated [Unknown]
  - Tumour lysis syndrome [Recovered/Resolved]
  - Lymphocyte count decreased [Recovered/Resolved]
  - Neutrophil count decreased [Unknown]
  - Platelet count decreased [Unknown]
